FAERS Safety Report 22115670 (Version 2)
Quarter: 2023Q2

REPORT INFORMATION
  Report Type: Report from Study
  Country: US (occurrence: US)
  Receive Date: 20230320
  Receipt Date: 20230418
  Transmission Date: 20230722
  Serious: Yes (Other)
  Sender: FDA-Public Use
  Company Number: US-002147023-NVSC2023US059410

PATIENT
  Age: 70 Year
  Sex: Female

DRUGS (3)
  1. ENTRESTO [Suspect]
     Active Substance: SACUBITRIL\VALSARTAN
     Indication: Cardiac failure
     Dosage: 1 DOSAGE FORM, BID (24 /26 MG)
     Route: 048
     Dates: start: 20230131
  2. XARELTO [Suspect]
     Active Substance: RIVAROXABAN
     Indication: Product used for unknown indication
     Dosage: UNK
     Route: 065
  3. LINZESS [Concomitant]
     Active Substance: LINACLOTIDE
     Indication: Inflammatory bowel disease
     Dosage: UNK
     Route: 065

REACTIONS (4)
  - Atrial fibrillation [Unknown]
  - Heart rate increased [Unknown]
  - Fatigue [Unknown]
  - Salt craving [Unknown]

NARRATIVE: CASE EVENT DATE: 20230311
